FAERS Safety Report 16915217 (Version 1)
Quarter: 2019Q4

REPORT INFORMATION
  Report Type: Spontaneous
  Country: US (occurrence: US)
  Receive Date: 20191011
  Receipt Date: 20191011
  Transmission Date: 20200122
  Serious: Yes (Disabling)
  Sender: FDA-Public Use
  Company Number: None

PATIENT
  Age: 43 Year
  Sex: Female
  Weight: 71.1 kg

DRUGS (10)
  1. ALVESCO [Suspect]
     Active Substance: CICLESONIDE
     Indication: ASTHMA
     Dosage: ?          QUANTITY:1 PUFF(S);?
     Route: 055
     Dates: start: 20190825, end: 20190930
  2. COQ10 [Concomitant]
     Active Substance: UBIDECARENONE
  3. GRAPE SEED [Concomitant]
     Active Substance: HERBALS\VITIS VINIFERA SEED
  4. RESVERATROL [Concomitant]
     Active Substance: DIETARY SUPPLEMENT\RESVERATROL
  5. LORATIDINE [Concomitant]
     Active Substance: LORATADINE
  6. MAGNESIUM [Concomitant]
     Active Substance: MAGNESIUM
  7. WOMWN^S MULTI VITAMIN [Concomitant]
  8. OMEGA [Concomitant]
     Active Substance: CONVALLARIA MAJALIS\CRATAEGUS LAEVIGATA LEAF\PROXYPHYLLINE
  9. POTASSIUM [Concomitant]
     Active Substance: POTASSIUM
  10. TRIAMTERENE. [Concomitant]
     Active Substance: TRIAMTERENE

REACTIONS (9)
  - Tinnitus [None]
  - Depression [None]
  - Feeling abnormal [None]
  - Deafness [None]
  - Drug hypersensitivity [None]
  - Anger [None]
  - Ear congestion [None]
  - Feeling of despair [None]
  - Impaired work ability [None]

NARRATIVE: CASE EVENT DATE: 20190830
